FAERS Safety Report 4779877-6 (Version None)
Quarter: 2005Q3

REPORT INFORMATION
  Report Type: 
  Country: None (occurrence: None)
  Receive Date: 20050914
  Receipt Date: 20041102
  Transmission Date: 20060218
  Serious: Yes (Death, Hospitalization, Other)
  Sender: FDA-Public Use
  Company Number: 163-20785-04090699

PATIENT
  Age: 66 Year
  Sex: Male

DRUGS (11)
  1. THALOMID [Suspect]
     Indication: ACUTE MYELOID LEUKAEMIA
     Dosage: 200 MG, QHS, ORAL
     Route: 048
     Dates: start: 20040126, end: 20040921
  2. FLUDARABINE PHOSPHATE [Suspect]
     Indication: ACUTE MYELOID LEUKAEMIA
     Dosage: 27 MG, DAILY, INTRAVENOUS
     Route: 042
     Dates: start: 20040916, end: 20040920
  3. CARBOPLATIN [Suspect]
     Indication: ACUTE MYELOID LEUKAEMIA
     Dosage: 215 MG, DAILY, INTRAVENOUS
     Route: 042
     Dates: start: 20040916, end: 20040920
  4. TOPOTECAN (TOPOTECAN) [Suspect]
     Indication: ACUTE MYELOID LEUKAEMIA
     Dosage: 1.5 MG, DAILY, INTRAVENOUS
     Route: 042
     Dates: start: 20040921, end: 20040923
  5. CEFEPIME [Concomitant]
  6. TOBRAMYCIN [Concomitant]
  7. RANITIDINE [Concomitant]
  8. DIGOXIN [Concomitant]
  9. VANCOMYCIN [Concomitant]
  10. FOSPHENYTOIN SODIUM [Concomitant]
  11. ACYCLOVIR [Concomitant]

REACTIONS (9)
  - ATRIAL FIBRILLATION [None]
  - BRAIN HERNIATION [None]
  - DEATH [None]
  - DYSPNOEA [None]
  - ENCEPHALOPATHY [None]
  - INFECTION [None]
  - LISTERIOSIS [None]
  - MENINGITIS CRYPTOCOCCAL [None]
  - NEUTROPHIL COUNT DECREASED [None]
